FAERS Safety Report 8837441 (Version 1)
Quarter: 2012Q4

REPORT INFORMATION
  Report Type: 
  Country: US (occurrence: US)
  Receive Date: 20121012
  Receipt Date: 20121012
  Transmission Date: 20130627
  Serious: Yes (Hospitalization, Other)
  Sender: FDA-Public Use
  Company Number: US-MYLANLABS-2012S1020880

PATIENT
  Sex: Male

DRUGS (1)
  1. CLOZAPINE TABLETS [Suspect]

REACTIONS (1)
  - Road traffic accident [Not Recovered/Not Resolved]
